FAERS Safety Report 19117471 (Version 2)
Quarter: 2021Q4

REPORT INFORMATION
  Report Type: Spontaneous
  Country: US (occurrence: None)
  Receive Date: 20210409
  Receipt Date: 20211119
  Transmission Date: 20220303
  Serious: Yes (Other)
  Sender: FDA-Public Use
  Company Number: 2021A266192

PATIENT
  Age: 18096 Day
  Sex: Male

DRUGS (20)
  1. NEXIUM [Suspect]
     Active Substance: ESOMEPRAZOLE MAGNESIUM
     Route: 048
     Dates: start: 1995, end: 2017
  2. NEXIUM 24HR [Suspect]
     Active Substance: ESOMEPRAZOLE MAGNESIUM
     Route: 048
     Dates: start: 1995, end: 2017
  3. PRILOSEC [Suspect]
     Active Substance: OMEPRAZOLE MAGNESIUM
     Route: 048
     Dates: start: 1995, end: 2017
  4. PRILOSEC OTC [Suspect]
     Active Substance: OMEPRAZOLE MAGNESIUM
     Route: 048
     Dates: start: 1995, end: 2017
  5. PREVACID [Suspect]
     Active Substance: LANSOPRAZOLE
     Route: 065
     Dates: start: 1995, end: 2017
  6. PREVACID 24 HR [Suspect]
     Active Substance: LANSOPRAZOLE
     Route: 065
     Dates: start: 1995, end: 2017
  7. ATORVASTATIN [Concomitant]
     Active Substance: ATORVASTATIN
  8. RANITIDINE [Concomitant]
     Active Substance: RANITIDINE
  9. OXYCODONE [Concomitant]
     Active Substance: OXYCODONE
  10. DIAZEPAM [Concomitant]
     Active Substance: DIAZEPAM
  11. TOPIRAMATE [Concomitant]
     Active Substance: TOPIRAMATE
  12. AMOXICILLIN\CLAVULANATE POTASSIUM [Concomitant]
     Active Substance: AMOXICILLIN\CLAVULANATE POTASSIUM
  13. ALPRAZOLAM [Concomitant]
     Active Substance: ALPRAZOLAM
  14. HYDROMORPHONE [Concomitant]
     Active Substance: HYDROMORPHONE
  15. LEVITRA [Concomitant]
     Active Substance: VARDENAFIL HYDROCHLORIDE
  16. LORAZEPAM [Concomitant]
     Active Substance: LORAZEPAM
  17. ESCITALOPRAM [Concomitant]
     Active Substance: ESCITALOPRAM OXALATE
  18. ESCITALOPRAM [Concomitant]
     Active Substance: ESCITALOPRAM OXALATE
  19. PAROXETINE [Concomitant]
     Active Substance: PAROXETINE
  20. PAROXETINE [Concomitant]
     Active Substance: PAROXETINE

REACTIONS (3)
  - Chronic kidney disease [Unknown]
  - Renal failure [Unknown]
  - End stage renal disease [Unknown]

NARRATIVE: CASE EVENT DATE: 20180728
